FAERS Safety Report 5095070-4 (Version None)
Quarter: 2006Q3

REPORT INFORMATION
  Report Type: 
  Country: None (occurrence: None)
  Receive Date: 20060901
  Receipt Date: 20060727
  Transmission Date: 20061208
  Serious: Yes (Other)
  Sender: FDA-Public Use
  Company Number: PHFR2006GB02690

PATIENT

DRUGS (1)
  1. NEORAL [Suspect]
     Dosage: 200MG DAILY
     Route: 048

REACTIONS (3)
  - DYSPHAGIA [None]
  - GASTROINTESTINAL DISORDER [None]
  - SURGERY [None]
